FAERS Safety Report 8216419-7 (Version None)
Quarter: 2012Q1

REPORT INFORMATION
  Report Type: 
  Country: None (occurrence: None)
  Receive Date: 20120316
  Receipt Date: 20120313
  Transmission Date: 20120608
  Serious: Yes (Life-Threatening)
  Sender: FDA-Public Use
  Company Number: PHHY2012DE022142

PATIENT
  Sex: Female

DRUGS (8)
  1. CLOZAPINE [Suspect]
     Dosage: 37.5 MG, QD
     Route: 048
     Dates: start: 20111116, end: 20111130
  2. LORAZEPAM [Concomitant]
     Dosage: 2 MG, Q96H
     Route: 048
     Dates: start: 20111024
  3. CLOZAPINE [Suspect]
     Dosage: 25 MG, QD
     Route: 048
     Dates: start: 20111102, end: 20111115
  4. CYMBALTA [Concomitant]
     Dosage: UNK UKN, UNK
  5. CLOZAPINE [Suspect]
     Dosage: 12.5 MG, QD
     Route: 048
     Dates: start: 20111027, end: 20111101
  6. LYRICA [Concomitant]
     Dosage: 50 MG, QD
     Route: 048
     Dates: start: 20111024
  7. CLOZAPINE [Suspect]
     Dosage: 25 MG, QD
     Route: 048
     Dates: end: 20111209
  8. IBUPROFEN [Concomitant]
     Dosage: UNK UKN, UNK

REACTIONS (11)
  - ARTHRALGIA [None]
  - DIARRHOEA HAEMORRHAGIC [None]
  - MUCOSAL INFLAMMATION [None]
  - PYREXIA [None]
  - EOSINOPHIL COUNT INCREASED [None]
  - DIARRHOEA [None]
  - CYST [None]
  - C-REACTIVE PROTEIN INCREASED [None]
  - HERNIA [None]
  - COLITIS [None]
  - INTESTINAL ULCER [None]
